FAERS Safety Report 20775383 (Version 1)
Quarter: 2022Q2

REPORT INFORMATION
  Report Type: Spontaneous
  Country: IN (occurrence: IN)
  Receive Date: 20220502
  Receipt Date: 20220502
  Transmission Date: 20220721
  Serious: Yes (Death, Hospitalization)
  Sender: FDA-Public Use
  Company Number: IN-PFIZER INC-202200617902

PATIENT
  Age: 18 Year
  Sex: Female

DRUGS (1)
  1. INOTUZUMAB OZOGAMICIN [Suspect]
     Active Substance: INOTUZUMAB OZOGAMICIN
     Indication: Precursor B-lymphoblastic lymphoma
     Dosage: 1 MG
     Route: 042
     Dates: start: 20211009, end: 20211214

REACTIONS (1)
  - Death [Fatal]
